FAERS Safety Report 9806012 (Version 1)
Quarter: 2014Q1

REPORT INFORMATION
  Report Type: Spontaneous
  Country: US (occurrence: US)
  Receive Date: 20140109
  Receipt Date: 20140109
  Transmission Date: 20141002
  Serious: No
  Sender: FDA-Public Use
  Company Number: US-B.I. PHARMACEUTICALS,INC./RIDGEFIELD-2014-BI-00194BP

PATIENT
  Age: 73 Year
  Sex: Male
  Weight: 82 kg

DRUGS (14)
  1. SPIRIVA [Suspect]
     Indication: CHRONIC OBSTRUCTIVE PULMONARY DISEASE
     Dosage: 18 MCG
     Route: 048
     Dates: start: 2012
  2. SPIRIVA [Suspect]
     Dosage: 18 MCG
     Route: 055
     Dates: start: 2012
  3. ADVAIR [Concomitant]
     Indication: CHRONIC OBSTRUCTIVE PULMONARY DISEASE
     Dosage: STRENGTH: 250/50; DAILY DOSE: 500/100
     Route: 055
  4. NORVASC [Concomitant]
     Indication: HYPERTENSION
     Dosage: 10 MG
     Route: 048
  5. GLYBURIDE [Concomitant]
     Indication: TYPE 2 DIABETES MELLITUS
     Dosage: 5 MG
     Route: 048
  6. METFORMIN [Concomitant]
     Indication: TYPE 2 DIABETES MELLITUS
     Dosage: 2000 MG
     Route: 048
  7. OMEPRAZOLE [Concomitant]
     Indication: GASTROOESOPHAGEAL REFLUX DISEASE
     Dosage: 20 MG
     Route: 048
  8. HYDROCHLOROTHIAZIDE [Concomitant]
     Indication: HYPERTENSION
     Dosage: 12.5 MG
     Route: 048
  9. QUINAPRIL [Concomitant]
     Dosage: 80 MG
     Route: 048
  10. ATENOLOL [Concomitant]
     Indication: HYPERTENSION
     Dosage: 50 MG
     Route: 048
  11. PLAVIX [Concomitant]
     Indication: CORONARY ARTERIAL STENT INSERTION
     Dosage: 75 MG
     Route: 048
  12. ASPIRIN [Concomitant]
     Dosage: 81 MG
     Route: 048
  13. VYTORIN [Concomitant]
     Indication: BLOOD CHOLESTEROL INCREASED
     Dosage: DOSE PER APPLICATION: 10-40 MG; DAILY DOSE: 10-40 MG
     Route: 048
  14. PREDNISONE [Concomitant]
     Indication: POLYMYALGIA RHEUMATICA
     Dosage: 2 MG
     Route: 048

REACTIONS (2)
  - Dysphonia [Not Recovered/Not Resolved]
  - Incorrect route of drug administration [Recovered/Resolved]
